FAERS Safety Report 6818406-X (Version None)
Quarter: 2010Q3

REPORT INFORMATION
  Report Type: 
  Country: None (occurrence: None)
  Receive Date: 20100706
  Receipt Date: 20080321
  Transmission Date: 20110219
  Serious: No
  Sender: FDA-Public Use
  Company Number: US-PFIZER INC-2008016176

PATIENT
  Sex: Female

DRUGS (1)
  1. ZITHROMAX [Suspect]
     Dates: start: 20080220

REACTIONS (3)
  - DECREASED APPETITE [None]
  - DIARRHOEA [None]
  - LETHARGY [None]
